FAERS Safety Report 24680546 (Version 1)
Quarter: 2024Q4

REPORT INFORMATION
  Report Type: Spontaneous
  Country: GB (occurrence: GB)
  Receive Date: 20241129
  Receipt Date: 20241129
  Transmission Date: 20250115
  Serious: Yes (Hospitalization, Other)
  Sender: ANI
  Company Number: GB-ANIPHARMA-2024-UK-000232

PATIENT
  Sex: Female

DRUGS (1)
  1. CANDESARTAN CILEXETIL [Suspect]
     Active Substance: CANDESARTAN CILEXETIL
     Indication: Foetal exposure during pregnancy

REACTIONS (3)
  - Foetal renal impairment [Unknown]
  - Product prescribing error [Unknown]
  - Foetal exposure during pregnancy [Unknown]
